FAERS Safety Report 11009401 (Version 1)
Quarter: 2015Q2

REPORT INFORMATION
  Report Type: Spontaneous
  Country: US (occurrence: None)
  Receive Date: 20150409
  Receipt Date: 20150409
  Transmission Date: 20150821
  Serious: No
  Sender: FDA-Public Use
  Company Number: None

PATIENT
  Age: 49 Year
  Sex: Female
  Weight: 109.77 kg

DRUGS (7)
  1. TRIAMTERENE/HCT [Concomitant]
  2. WELLBUTRIN XL [Concomitant]
     Active Substance: BUPROPION HYDROCHLORIDE
  3. METFORMIN [Concomitant]
     Active Substance: METFORMIN HYDROCHLORIDE
  4. VICTOZA [Concomitant]
     Active Substance: LIRAGLUTIDE
  5. VIIBRYD [Suspect]
     Active Substance: VILAZODONE HYDROCHLORIDE
     Indication: DEPRESSION
     Dosage: AFTER  10 MG, I WAS ON 20 MG
     Route: 048
     Dates: start: 20150328, end: 20150407
  6. DIOVAN [Concomitant]
     Active Substance: VALSARTAN
  7. RANITIDINE [Concomitant]
     Active Substance: RANITIDINE\RANITIDINE HYDROCHLORIDE

REACTIONS (1)
  - Alopecia [None]

NARRATIVE: CASE EVENT DATE: 20150407
